FAERS Safety Report 26028414 (Version 2)
Quarter: 2025Q4

REPORT INFORMATION
  Report Type: Spontaneous
  Country: JP (occurrence: JP)
  Receive Date: 20251111
  Receipt Date: 20251208
  Transmission Date: 20260117
  Serious: Yes (Hospitalization)
  Sender: NOVO NORDISK
  Company Number: JP-NOVOPROD-1555973

PATIENT
  Age: 4 Year
  Sex: Female
  Weight: 12.8 kg

DRUGS (3)
  1. SOGROYA [Suspect]
     Active Substance: SOMAPACITAN-BECO
     Indication: Hypopituitarism
     Dosage: 1.4 MG, QW
     Route: 058
     Dates: start: 20230809
  2. CORTRIL [Concomitant]
     Active Substance: HYDROCORTISONE
     Indication: Hypopituitarism
     Dosage: 2 MG, QD
     Route: 048
     Dates: start: 20211001
  3. LEVOTHYROXINE [Concomitant]
     Active Substance: LEVOTHYROXINE
     Indication: Hypopituitarism
     Dosage: 25.00 UG/DAY
     Route: 048
     Dates: start: 20211001

REACTIONS (2)
  - Hypoglycaemic seizure [Recovered/Resolved]
  - Product use in unapproved indication [Not Recovered/Not Resolved]

NARRATIVE: CASE EVENT DATE: 20230809
